FAERS Safety Report 14040321 (Version 2)
Quarter: 2017Q4

REPORT INFORMATION
  Report Type: Spontaneous
  Country: US (occurrence: US)
  Receive Date: 20171004
  Receipt Date: 20171009
  Transmission Date: 20180321
  Serious: Yes (Hospitalization)
  Sender: FDA-Public Use
  Company Number: US-ACTELION-A-US2017-160298

PATIENT
  Age: 71 Year
  Sex: Female
  Weight: 53.61 kg

DRUGS (2)
  1. UPTRAVI [Suspect]
     Active Substance: SELEXIPAG
     Indication: PULMONARY HYPERTENSION
     Dosage: 600 MCG, BID
     Route: 048
  2. UPTRAVI [Suspect]
     Active Substance: SELEXIPAG
     Dosage: UNK
     Route: 048

REACTIONS (14)
  - Hypoxia [Unknown]
  - Pulmonary hypertension [Unknown]
  - Fatigue [Unknown]
  - Decreased appetite [Unknown]
  - Fall [Unknown]
  - Upper limb fracture [Unknown]
  - Femur fracture [Unknown]
  - Stress fracture [Unknown]
  - Dysphagia [Unknown]
  - Myalgia [Unknown]
  - Weight decreased [Unknown]
  - Joint dislocation [Unknown]
  - Chest discomfort [Unknown]
  - Dyspnoea exertional [Unknown]
